FAERS Safety Report 7378905-1 (Version None)
Quarter: 2011Q1

REPORT INFORMATION
  Report Type: 
  Country: None (occurrence: None)
  Receive Date: 20110328
  Receipt Date: 20110322
  Transmission Date: 20110831
  Serious: Yes (Death)
  Sender: FDA-Public Use
  Company Number: PHHY2011US23992

PATIENT
  Sex: Female

DRUGS (3)
  1. TASIGNA [Suspect]
     Dosage: 400 MG, BID
     Route: 048
  2. SPRYCEL [Suspect]
     Dosage: 50 MG, BID
     Dates: start: 20110120
  3. SPRYCEL [Suspect]
     Dosage: 70 MG, BID

REACTIONS (1)
  - DEATH [None]
